FAERS Safety Report 8620029-7 (Version None)
Quarter: 2012Q3

REPORT INFORMATION
  Report Type: 
  Country: None (occurrence: None)
  Receive Date: 20120824
  Receipt Date: 20120822
  Transmission Date: 20120928
  Serious: Yes (Hospitalization)
  Sender: FDA-Public Use
  Company Number: PHHO2011BE05825

PATIENT
  Sex: Male

DRUGS (4)
  1. EVEROLIMUS [Suspect]
     Indication: IMMUNOSUPPRESSANT DRUG THERAPY
     Dosage: 3.5 MG, UNK
     Route: 048
     Dates: start: 20100903, end: 20101216
  2. MYFORTIC [Concomitant]
     Indication: IMMUNOSUPPRESSANT DRUG THERAPY
     Dosage: 1080 MG, QD
     Route: 048
     Dates: start: 20081214
  3. MEDROL [Concomitant]
     Indication: IMMUNOSUPPRESSANT DRUG THERAPY
     Dosage: 4 MG, QD
     Route: 048
     Dates: start: 20090213
  4. GANCICLOVIR [Concomitant]
     Route: 042

REACTIONS (8)
  - LUNG INFILTRATION [None]
  - PLEURAL EFFUSION [None]
  - RESPIRATORY FAILURE [None]
  - BLADDER PAIN [None]
  - SEPTIC SHOCK [None]
  - DIARRHOEA [None]
  - PYREXIA [None]
  - DYSPNOEA EXERTIONAL [None]
